FAERS Safety Report 9310339 (Version 2)
Quarter: 2013Q3

REPORT INFORMATION
  Report Type: Spontaneous
  Country: US (occurrence: US)
  Receive Date: 20130527
  Receipt Date: 20130711
  Transmission Date: 20140515
  Serious: Yes (Hospitalization)
  Sender: FDA-Public Use
  Company Number: US-PFIZER INC-2013158605

PATIENT
  Age: 89 Year
  Sex: 0

DRUGS (1)
  1. TIKOSYN [Suspect]
     Dosage: 125 UG, 1X/DAY

REACTIONS (1)
  - Cardiac valve disease [Unknown]
